FAERS Safety Report 21847438 (Version 1)
Quarter: 2023Q1

REPORT INFORMATION
  Report Type: Spontaneous
  Country: US (occurrence: US)
  Receive Date: 20230111
  Receipt Date: 20230111
  Transmission Date: 20230417
  Serious: No
  Sender: FDA-Public Use
  Company Number: US-SA-SAC20230111000092

PATIENT
  Sex: Male

DRUGS (15)
  1. DUPIXENT [Suspect]
     Active Substance: DUPILUMAB
     Indication: Dermatitis atopic
     Dosage: 300 MG, QOW
     Route: 058
     Dates: start: 20210522
  2. CARVEDILOL [Concomitant]
     Active Substance: CARVEDILOL
  3. DOXEPIN [Concomitant]
     Active Substance: DOXEPIN
  4. ELIQUIS [Concomitant]
     Active Substance: APIXABAN
  5. ENALAPRIL [Concomitant]
     Active Substance: ENALAPRIL
  6. ENTRESTO [Concomitant]
     Active Substance: SACUBITRIL\VALSARTAN
  7. ESZOPICLONE [Concomitant]
     Active Substance: ESZOPICLONE
  8. FLECAINIDE [Concomitant]
     Active Substance: FLECAINIDE
  9. FUROSEMIDE [Concomitant]
     Active Substance: FUROSEMIDE
  10. MYRBETRIQ [Concomitant]
     Active Substance: MIRABEGRON
  11. PREDNISONE [Concomitant]
     Active Substance: PREDNISONE
  12. ZOLPIDEM [Concomitant]
     Active Substance: ZOLPIDEM TARTRATE
  13. SPIRONOLACTONE [Concomitant]
     Active Substance: SPIRONOLACTONE
  14. TRIAMCINOLONE [Concomitant]
     Active Substance: TRIAMCINOLONE
  15. SPS [Concomitant]
     Active Substance: SODIUM POLYSTYRENE SULFONATE

REACTIONS (1)
  - Drug ineffective [Unknown]
